FAERS Safety Report 4407895-6 (Version None)
Quarter: 2004Q3

REPORT INFORMATION
  Report Type: 
  Country: None (occurrence: None)
  Receive Date: 20040726
  Receipt Date: 20040714
  Transmission Date: 20050211
  Serious: Yes (Other)
  Sender: FDA-Public Use
  Company Number: PHBS2004JP09447

PATIENT
  Age: 68 Year
  Sex: Female

DRUGS (4)
  1. TEGRETOL [Suspect]
     Indication: TRIGEMINAL NEURALGIA
     Dosage: 300 TO 600 MG/DAY
     Route: 048
  2. TEGRETOL [Suspect]
     Dosage: 200 MG/DAY
     Route: 048
  3. TEGRETOL [Suspect]
     Dosage: 120 MG/DAY
     Route: 048
  4. ZONISAMIDE [Concomitant]
     Dosage: 250 MG/DAY
     Route: 065

REACTIONS (7)
  - DRUG HYPERSENSITIVITY [None]
  - EOSINOPHIL COUNT INCREASED [None]
  - ERYTHEMA MULTIFORME [None]
  - HUMAN HERPES VIRUS 6 SEROLOGY POSITIVE [None]
  - PEMPHIGOID [None]
  - PHARYNGOLARYNGEAL PAIN [None]
  - PRURITUS [None]
